FAERS Safety Report 25201288 (Version 2)
Quarter: 2025Q2

REPORT INFORMATION
  Report Type: Spontaneous
  Country: US (occurrence: US)
  Receive Date: 20250416
  Receipt Date: 20250421
  Transmission Date: 20250716
  Serious: No
  Sender: Haleon PLC
  Company Number: US-HALEON-2237704

PATIENT
  Age: 43 Year
  Sex: Male

DRUGS (1)
  1. NICORETTE ORIGINAL [Suspect]
     Active Substance: NICOTINE
     Indication: Smoking cessation therapy
     Dates: start: 20250404, end: 20250410

REACTIONS (2)
  - Dysuria [Recovered/Resolved]
  - Drug ineffective [Unknown]
